FAERS Safety Report 5925531-4 (Version None)
Quarter: 2008Q4

REPORT INFORMATION
  Report Type: 
  Country: None (occurrence: None)
  Receive Date: 20081021
  Receipt Date: 20081014
  Transmission Date: 20090506
  Serious: Yes (Other)
  Sender: FDA-Public Use
  Company Number: PHEH2008US09212

PATIENT
  Sex: Female

DRUGS (18)
  1. RECLAST [Suspect]
     Indication: OSTEOPOROSIS
     Dosage: 5 MG, ONCE/SINGLE
     Dates: start: 20081014
  2. ADVAIR DISKUS 100/50 [Concomitant]
  3. ALBUTEROL [Concomitant]
  4. DURAGESIC-100 [Concomitant]
  5. SINGULAIR [Concomitant]
  6. TEGRETOL [Concomitant]
  7. DIAZEPAM [Concomitant]
  8. DEPAKOTE [Concomitant]
  9. VITAMIN B COMPLEX CAP [Concomitant]
  10. LASIX [Concomitant]
  11. ZOCOR [Concomitant]
  12. PREVACID [Concomitant]
  13. FLEXERIL [Concomitant]
  14. RESTORIL [Concomitant]
  15. DARVOCET-N 100 [Concomitant]
  16. ZOFRAN [Concomitant]
  17. MIACALCIN [Concomitant]
  18. OXYGEN [Concomitant]

REACTIONS (1)
  - CONVULSION [None]
